FAERS Safety Report 22998143 (Version 3)
Quarter: 2024Q3

REPORT INFORMATION
  Report Type: Report from Study
  Country: US (occurrence: US)
  Receive Date: 20230928
  Receipt Date: 20240731
  Transmission Date: 20241017
  Serious: Yes (Hospitalization)
  Sender: ABBVIE
  Company Number: US-ABBVIE-22K-163-4455850-00

PATIENT
  Sex: Male

DRUGS (3)
  1. HUMIRA [Suspect]
     Active Substance: ADALIMUMAB
     Indication: Colitis ulcerative
     Dosage: CITRATE FREE,?FORM STRENGTH: 40 MILLIGRAM
     Route: 058
     Dates: start: 20210823
  2. MODERNA COVID-19 VACCINE [Concomitant]
     Active Substance: ELASOMERAN
     Indication: COVID-19 immunisation
     Dosage: TIME INTERVAL: TOTAL: ONE IN ONCE FREQUENCY, BOOSTER VACCINE
     Route: 030
  3. JANSSEN COVID-19 VACCINE [Concomitant]
     Active Substance: AD26.COV2.S
     Indication: COVID-19 immunisation
     Dosage: TIME INTERVAL: TOTAL: ONE IN ONCE FREQUENCY
     Route: 030

REACTIONS (12)
  - Loss of consciousness [Recovered/Resolved]
  - Fatigue [Unknown]
  - Urinary tract infection [Recovering/Resolving]
  - Large intestine polyp [Recovered/Resolved]
  - Fall [Recovered/Resolved]
  - Eye disorder [Unknown]
  - Malaise [Unknown]
  - Fall [Recovered/Resolved]
  - Asthenia [Unknown]
  - Eye infection [Not Recovered/Not Resolved]
  - Dry eye [Not Recovered/Not Resolved]
  - Visual impairment [Not Recovered/Not Resolved]

NARRATIVE: CASE EVENT DATE: 20230101
